FAERS Safety Report 5857333-1 (Version None)
Quarter: 2008Q3

REPORT INFORMATION
  Report Type: 
  Country: None (occurrence: None)
  Receive Date: 20080826
  Receipt Date: 20080818
  Transmission Date: 20090109
  Serious: Yes (Hospitalization)
  Sender: FDA-Public Use
  Company Number: CA-JNJFOC-20080503362

PATIENT
  Sex: Female
  Weight: 52.7 kg

DRUGS (3)
  1. REMICADE [Suspect]
     Route: 042
  2. REMICADE [Suspect]
     Dosage: 20TH INFUSION
     Route: 042
  3. REMICADE [Suspect]
     Indication: CROHN'S DISEASE
     Dosage: 19 INFUSIONS
     Route: 042

REACTIONS (3)
  - CROHN'S DISEASE [None]
  - LOSS OF CONSCIOUSNESS [None]
  - VOMITING [None]
